FAERS Safety Report 4980286-5 (Version None)
Quarter: 2006Q2

REPORT INFORMATION
  Report Type: 
  Country: None (occurrence: None)
  Receive Date: 20060420
  Receipt Date: 20060420
  Transmission Date: 20061013
  Serious: Yes (Hospitalization)
  Sender: FDA-Public Use
  Company Number: None

PATIENT
  Age: 79 Year
  Sex: Male
  Weight: 86.5 kg

DRUGS (17)
  1. AVELOX [Suspect]
  2. INSULIN REG HUMAN/NOVOLIN R [Concomitant]
  3. HALOPERIDOL [Concomitant]
  4. FUROSEMIDE [Concomitant]
  5. TRAVOPROST SOLN [Concomitant]
  6. TOLTERODINE [Concomitant]
  7. NITROGLYCERIN [Concomitant]
  8. FINASTERIDE [Concomitant]
  9. ENALAPRIL MALEATE [Concomitant]
  10. CLOPIDOGREL BISULFATE [Concomitant]
  11. ASPIRIN [Concomitant]
  12. NITROGLYCERIN [Concomitant]
  13. DM 10/GUAIF 100MG.5ML (ALC/SUGAR FREE) SYRUP [Concomitant]
  14. SIMVASTATIN [Concomitant]
  15. METOPROLOL [Concomitant]
  16. IPRATROPIUM BROMIDE [Concomitant]
  17. ALBUTEROL [Concomitant]

REACTIONS (1)
  - HALLUCINATION [None]
